FAERS Safety Report 12337344 (Version 1)
Quarter: 2016Q2

REPORT INFORMATION
  Report Type: Spontaneous
  Country: FR (occurrence: FR)
  Receive Date: 20160505
  Receipt Date: 20160505
  Transmission Date: 20160815
  Serious: Yes (Congenital Anomaly)
  Sender: FDA-Public Use
  Company Number: FR-PFIZER INC-2016237627

PATIENT
  Sex: Female

DRUGS (2)
  1. DOSTINEX [Suspect]
     Active Substance: CABERGOLINE
     Indication: OVARIAN HYPERSTIMULATION SYNDROME
     Dosage: 1 DF, DAILY
     Route: 064
     Dates: start: 20151127, end: 20151206
  2. LASILIX [Concomitant]
     Active Substance: FUROSEMIDE
     Indication: OVARIAN HYPERSTIMULATION SYNDROME
     Dosage: UNK
     Route: 064

REACTIONS (4)
  - Encephalocele [Not Recovered/Not Resolved]
  - Cerebellar hypoplasia [Not Recovered/Not Resolved]
  - Multiple congenital abnormalities [Not Recovered/Not Resolved]
  - Meningocele [Not Recovered/Not Resolved]

NARRATIVE: CASE EVENT DATE: 2016
